FAERS Safety Report 8207762-6 (Version None)
Quarter: 2012Q1

REPORT INFORMATION
  Report Type: 
  Country: None (occurrence: None)
  Receive Date: 20120313
  Receipt Date: 20120313
  Transmission Date: 20120608
  Serious: Yes (Hospitalization)
  Sender: FDA-Public Use
  Company Number: None

PATIENT
  Sex: Male
  Weight: 99.1 kg

DRUGS (1)
  1. ERBITUX [Suspect]
     Dosage: 3152 MG

REACTIONS (7)
  - HYPOPHAGIA [None]
  - DECREASED APPETITE [None]
  - DEHYDRATION [None]
  - ARTHRALGIA [None]
  - GOUT [None]
  - PYREXIA [None]
  - STOMATITIS [None]
